FAERS Safety Report 6097403-9 (Version None)
Quarter: 2009Q1

REPORT INFORMATION
  Report Type: 
  Country: None (occurrence: None)
  Receive Date: 20090227
  Receipt Date: 20080404
  Transmission Date: 20090719
  Serious: No
  Sender: FDA-Public Use
  Company Number: A0714330A

PATIENT
  Age: 27 Year
  Sex: Female
  Weight: 62.3 kg

DRUGS (1)
  1. IMITREX [Suspect]
     Indication: MIGRAINE
     Dosage: 6MG SINGLE DOSE
     Route: 058
     Dates: start: 20080227, end: 20080227

REACTIONS (2)
  - HYPOAESTHESIA ORAL [None]
  - SWOLLEN TONGUE [None]
